FAERS Safety Report 20807955 (Version 1)
Quarter: 2022Q2

REPORT INFORMATION
  Report Type: Spontaneous
  Country: US (occurrence: None)
  Receive Date: 20220509
  Receipt Date: 20220509
  Transmission Date: 20220721
  Serious: Yes (Disabling)
  Sender: FDA-Public Use
  Company Number: None

PATIENT
  Age: 72 Year
  Sex: Female
  Weight: 63 kg

DRUGS (1)
  1. HIZENTRA [Suspect]
     Active Substance: HUMAN IMMUNOGLOBULIN G
     Indication: Immunodeficiency common variable
     Route: 058
     Dates: end: 20220331

REACTIONS (6)
  - Malaise [None]
  - Oropharyngeal pain [None]
  - Ear pain [None]
  - Chest pain [None]
  - Cough [None]
  - Pain [None]

NARRATIVE: CASE EVENT DATE: 20220331
